FAERS Safety Report 23734656 (Version 5)
Quarter: 2024Q4

REPORT INFORMATION
  Report Type: Report from Study
  Country: US (occurrence: US)
  Receive Date: 20240412
  Receipt Date: 20241220
  Transmission Date: 20250115
  Serious: Yes (Hospitalization, Other)
  Sender: BOEHRINGER INGELHEIM
  Company Number: US-BoehringerIngelheim-2023-BI-239095

PATIENT
  Age: 67 Year
  Sex: Female

DRUGS (3)
  1. OFEV [Suspect]
     Active Substance: NINTEDANIB
     Indication: Interstitial lung disease
     Route: 048
     Dates: start: 202304
  2. OFEV [Suspect]
     Active Substance: NINTEDANIB
     Indication: Idiopathic pulmonary fibrosis
     Route: 048
     Dates: start: 20230330
  3. TYVASO DPI TITRAT KIT POWDER [Concomitant]
     Indication: Product used for unknown indication

REACTIONS (9)
  - Pneumonia [Unknown]
  - Cough [Not Recovered/Not Resolved]
  - Dyspnoea [Not Recovered/Not Resolved]
  - Pain [Not Recovered/Not Resolved]
  - Dyspnoea exertional [Not Recovered/Not Resolved]
  - Illness [Unknown]
  - Gastrointestinal disorder [Not Recovered/Not Resolved]
  - Asthenia [Not Recovered/Not Resolved]
  - Abdominal discomfort [Not Recovered/Not Resolved]
